FAERS Safety Report 4314278-6 (Version None)
Quarter: 2004Q1

REPORT INFORMATION
  Report Type: 
  Country: None (occurrence: None)
  Receive Date: 20040308
  Receipt Date: 20040302
  Transmission Date: 20041129
  Serious: No
  Sender: FDA-Public Use
  Company Number: 2004UW03849

PATIENT

DRUGS (1)
  1. SEROQUEL [Suspect]

REACTIONS (2)
  - DRUG DEPENDENCE [None]
  - OVERDOSE [None]
